FAERS Safety Report 23860850 (Version 1)
Quarter: 2024Q2

REPORT INFORMATION
  Report Type: Spontaneous
  Country: FR (occurrence: FR)
  Receive Date: 20240516
  Receipt Date: 20240516
  Transmission Date: 20240716
  Serious: Yes (Life-Threatening, Hospitalization)
  Sender: FDA-Public Use
  Company Number: None

PATIENT
  Age: 50 Year
  Sex: Male
  Weight: 66 kg

DRUGS (3)
  1. CAPECITABINE [Suspect]
     Active Substance: CAPECITABINE
     Indication: Renal cell carcinoma
     Dosage: (14 D/21 D?DAILY DOSE: 3600 MILLIGRAM
     Route: 048
     Dates: start: 202402
  2. CAPECITABINE [Suspect]
     Active Substance: CAPECITABINE
     Indication: Renal cell carcinoma
     Dosage: DAILY DOSE: 3600 MILLIGRAM
     Route: 048
     Dates: start: 20240219
  3. NIVOLUMAB [Concomitant]
     Active Substance: NIVOLUMAB
     Dates: start: 20231020

REACTIONS (7)
  - Congenital aplasia [Recovered/Resolved]
  - Mucosal inflammation [Recovered/Resolved]
  - Sepsis [Unknown]
  - Gastrointestinal disorder [Unknown]
  - Product administration error [Recovered/Resolved]
  - Accidental overdose [Unknown]
  - Off label use [Recovered/Resolved]

NARRATIVE: CASE EVENT DATE: 20240212
